FAERS Safety Report 6572451-0 (Version None)
Quarter: 2010Q1

REPORT INFORMATION
  Report Type: 
  Country: None (occurrence: None)
  Receive Date: 20100205
  Receipt Date: 20100126
  Transmission Date: 20100710
  Serious: Yes (Other)
  Sender: FDA-Public Use
  Company Number: US-PFIZER INC-2009313525

PATIENT
  Sex: Male

DRUGS (1)
  1. DILANTIN [Suspect]
     Dosage: UNK

REACTIONS (2)
  - CONVULSION [None]
  - DRUG LEVEL BELOW THERAPEUTIC [None]
